FAERS Safety Report 7276972 (Version 5)
Quarter: 2012Q4

REPORT INFORMATION
  Report Type: 
  Country: JP (occurrence: JP)
  Receive Date: 20100212
  Receipt Date: 20120912
  Transmission Date: 20130627
  Serious: Yes (Disabling, Other)
  Sender: FDA-Public Use
  Company Number: JP-BAYER-201010639BYL

PATIENT
  Age: 68 Year
  Sex: Male
  Weight: 69.8 kg

DRUGS (11)
  1. NEXAVAR [Suspect]
     Indication: HEPATIC NEOPLASM MALIGNANT
     Dosage: 800 mg (Daily Dose)
     Route: 048
     Dates: start: 20090630, end: 20090714
  2. NEXAVAR [Suspect]
     Indication: HEPATIC NEOPLASM MALIGNANT
     Dosage: 400 mg (Daily Dose)
     Route: 048
     Dates: start: 20090714, end: 20090715
  3. NEXAVAR [Suspect]
     Indication: HEPATIC NEOPLASM MALIGNANT
     Dosage: 400 mg (Daily Dose)
     Route: 048
     Dates: start: 20090723, end: 20090811
  4. NEXAVAR [Suspect]
     Indication: HEPATIC NEOPLASM MALIGNANT
     Dosage: 400 mg (Daily Dose)
     Route: 048
     Dates: start: 20090817, end: 20090828
  5. NEXAVAR [Suspect]
     Indication: HEPATIC NEOPLASM MALIGNANT
     Dosage: 400 mg, TIW
     Route: 048
     Dates: start: 20091021, end: 20091120
  6. NEXAVAR [Suspect]
     Indication: HEPATIC NEOPLASM MALIGNANT
     Dosage: 400 mg (Daily Dose)
     Route: 048
     Dates: start: 20091120, end: 20091203
  7. NEXAVAR [Suspect]
     Indication: HEPATIC NEOPLASM MALIGNANT
     Dosage: 800 mg (Daily Dose)
     Route: 048
     Dates: start: 20091203, end: 20091210
  8. NEXAVAR [Suspect]
     Indication: HEPATIC NEOPLASM MALIGNANT
     Dosage: 400 mg (Daily Dose)
     Route: 048
     Dates: start: 20091210, end: 20100303
  9. NEXAVAR [Suspect]
     Indication: HEPATIC NEOPLASM MALIGNANT
     Dosage: Daily dose 800 mg
     Route: 048
     Dates: start: 20100303
  10. NEXAVAR [Suspect]
     Indication: HEPATIC NEOPLASM MALIGNANT
     Dosage: 400 mg, QID
     Route: 048
     Dates: start: 20100611
  11. MICARDIS [Concomitant]
     Dosage: SINCE BEFORE NEXAVAR ADMINISTRATION
     Route: 048

REACTIONS (9)
  - Liver disorder [Recovered/Resolved]
  - Liver disorder [Recovering/Resolving]
  - Haemoptysis [Recovered/Resolved]
  - Palmar-plantar erythrodysaesthesia syndrome [Recovering/Resolving]
  - Palmar-plantar erythrodysaesthesia syndrome [Recovering/Resolving]
  - Hepatic function abnormal [Recovering/Resolving]
  - Diabetes mellitus [Not Recovered/Not Resolved]
  - Alopecia [Recovering/Resolving]
  - Palmar-plantar erythrodysaesthesia syndrome [Recovering/Resolving]
